FAERS Safety Report 21800979 (Version 1)
Quarter: 2022Q4

REPORT INFORMATION
  Report Type: Spontaneous
  Country: US (occurrence: None)
  Receive Date: 20221229
  Receipt Date: 20221229
  Transmission Date: 20230113
  Serious: No
  Sender: FDA-Public Use
  Company Number: None

PATIENT
  Age: 18 Year
  Sex: Female
  Weight: 42.75 kg

DRUGS (11)
  1. TRAMADOL HCL [Suspect]
     Active Substance: TRAMADOL HYDROCHLORIDE
     Indication: Tooth extraction
     Dosage: FREQUENCY : EVERY 6 HOURS;?
     Route: 048
     Dates: start: 20220505, end: 20220507
  2. SEROQUEL [Concomitant]
     Active Substance: QUETIAPINE FUMARATE
  3. LAMICTAL [Concomitant]
     Active Substance: LAMOTRIGINE
  4. KETOROLAC [Concomitant]
     Active Substance: KETOROLAC TROMETHAMINE
  5. FENOPROFEN [Concomitant]
     Active Substance: FENOPROFEN
  6. NURTEC ODT [Concomitant]
     Active Substance: RIMEGEPANT SULFATE
  7. AJOVY [Concomitant]
     Active Substance: FREMANEZUMAB-VFRM
  8. KYLEENA [Concomitant]
     Active Substance: LEVONORGESTREL
  9. IUD NOS [Concomitant]
     Active Substance: COPPER OR LEVONORGESTREL
  10. blisovi fe birth control [Concomitant]
  11. TYLENOL [Concomitant]
     Active Substance: ACETAMINOPHEN

REACTIONS (2)
  - Muscle twitching [None]
  - Muscle spasms [None]

NARRATIVE: CASE EVENT DATE: 20220505
